FAERS Safety Report 19002921 (Version 2)
Quarter: 2021Q1

REPORT INFORMATION
  Report Type: Report from Study
  Country: US (occurrence: US)
  Receive Date: 20210312
  Receipt Date: 20210323
  Transmission Date: 20210420
  Serious: Yes (Hospitalization, Other)
  Sender: FDA-Public Use
  Company Number: US-JAZZ-2021-US-004154

PATIENT
  Age: 40 Year
  Sex: Male

DRUGS (4)
  1. DEXAMETHASONE. [Suspect]
     Active Substance: DEXAMETHASONE
     Indication: COVID-19
  2. XYREM [Suspect]
     Active Substance: SODIUM OXYBATE
     Dosage: DOSE ADJUSTMENTS
     Route: 048
     Dates: start: 202006, end: 202007
  3. XYREM [Suspect]
     Active Substance: SODIUM OXYBATE
     Indication: SOMNOLENCE
     Dosage: 2.25 GRAM, BID
     Route: 048
     Dates: start: 202006, end: 202006
  4. XYREM [Suspect]
     Active Substance: SODIUM OXYBATE
     Dosage: 4.5 GRAM, BID
     Route: 048
     Dates: start: 202007

REACTIONS (7)
  - Tachycardia [Not Recovered/Not Resolved]
  - Anxiety [Not Recovered/Not Resolved]
  - COVID-19 [Recovered/Resolved]
  - Feeling abnormal [Not Recovered/Not Resolved]
  - Pneumonia [Recovered/Resolved]
  - Confusional state [Unknown]
  - Blood pressure increased [Not Recovered/Not Resolved]

NARRATIVE: CASE EVENT DATE: 2021
